FAERS Safety Report 4893297-5 (Version None)
Quarter: 2006Q1

REPORT INFORMATION
  Report Type: 
  Country: None (occurrence: None)
  Receive Date: 20060124
  Receipt Date: 20060111
  Transmission Date: 20060701
  Serious: Yes (Disabling)
  Sender: FDA-Public Use
  Company Number: IMP_1958_2005

PATIENT
  Age: 46 Year
  Sex: Male
  Weight: 122.4712 kg

DRUGS (1)
  1. CLARITIN-D [Suspect]
     Dosage: 1 TAB QDAY PO
     Route: 048
     Dates: start: 20051107, end: 20051115

REACTIONS (2)
  - DYSPNOEA [None]
  - HEART RATE INCREASED [None]
